FAERS Safety Report 26144164 (Version 1)
Quarter: 2025Q4

REPORT INFORMATION
  Report Type: Spontaneous
  Country: EU (occurrence: EU)
  Receive Date: 20251211
  Receipt Date: 20251211
  Transmission Date: 20260118
  Serious: Yes (Life-Threatening)
  Sender: RANBAXY
  Company Number: EU-AFSSAPS-CN2025000937

PATIENT
  Age: 52 Year
  Sex: Female
  Weight: 86 kg

DRUGS (2)
  1. IBUPROFEN [Suspect]
     Active Substance: IBUPROFEN
     Indication: Pain
     Dosage: 400 MILLIGRAM IN TOTAL
     Route: 048
     Dates: start: 20250726, end: 20250726
  2. GABAPENTIN [Concomitant]
     Active Substance: GABAPENTIN
     Indication: Product used for unknown indication
     Dosage: 900 MILLIGRAM, DAILY, 300X3/D
     Route: 048

REACTIONS (2)
  - Dermo-hypodermitis [Recovered/Resolved]
  - Septic shock [Recovered/Resolved]

NARRATIVE: CASE EVENT DATE: 20250728
